FAERS Safety Report 11263667 (Version 2)
Quarter: 2016Q2

REPORT INFORMATION
  Report Type: Report from Study
  Country: US (occurrence: US)
  Receive Date: 20150713
  Receipt Date: 20160623
  Transmission Date: 20160815
  Serious: Yes (Death)
  Sender: FDA-Public Use
  Company Number: US-ROCHE-1543297

PATIENT
  Age: 63 Year
  Sex: Female

DRUGS (7)
  1. LANTUS [Concomitant]
     Active Substance: INSULIN GLARGINE
     Indication: DIABETES MELLITUS
  2. XELODA [Suspect]
     Active Substance: CAPECITABINE
     Indication: MALIGNANT NEOPLASM OF SPINAL CORD
     Dosage: 1 TABLETS IN MA AND 2 TABLET IN PM, 7 DAYS ON 7 DAYS OFF
     Route: 048
     Dates: start: 20150324
  3. XELODA [Suspect]
     Active Substance: CAPECITABINE
     Indication: BONE CANCER
     Dosage: 14 DAYS ON THEN 7 DAYS OFF
     Route: 048
  4. XELODA [Suspect]
     Active Substance: CAPECITABINE
     Indication: BRAIN NEOPLASM MALIGNANT
     Dosage: 2 TABLET IN AM AND 2 TABLETS IN PM,  7 DAYS ON 7 DAYS OFF
     Route: 048
  5. XELODA [Suspect]
     Active Substance: CAPECITABINE
     Indication: BREAST CANCER
     Dosage: 4 TABLETS IN AM AND 4 TABLETS IN PM, FOR 14 DAYS ON AND OFF 7 DAYS
     Route: 048
     Dates: start: 20141212, end: 20150310
  6. XELODA [Suspect]
     Active Substance: CAPECITABINE
     Indication: HEPATIC CANCER
     Route: 048
  7. XELODA [Suspect]
     Active Substance: CAPECITABINE
     Indication: NEOPLASM MALIGNANT
     Dosage: 3 TABLET IN AM AND 3 TABLETS IN PM
     Route: 048

REACTIONS (7)
  - Death [Fatal]
  - Nausea [Unknown]
  - Fatigue [Recovering/Resolving]
  - Paraesthesia [Unknown]
  - Skin fissures [Not Recovered/Not Resolved]
  - Hypoaesthesia [Unknown]
  - Hypersomnia [Recovering/Resolving]

NARRATIVE: CASE EVENT DATE: 201507
